FAERS Safety Report 9507567 (Version 1)
Quarter: 2013Q3

REPORT INFORMATION
  Report Type: Spontaneous
  Country: BR (occurrence: BR)
  Receive Date: 20130909
  Receipt Date: 20130909
  Transmission Date: 20140515
  Serious: Yes (Other)
  Sender: FDA-Public Use
  Company Number: BR-SANOFI-AVENTIS-2013SA083552

PATIENT
  Age: 59 Year
  Sex: Female
  Weight: 69 kg

DRUGS (16)
  1. APIDRA [Suspect]
     Indication: TYPE 1 DIABETES MELLITUS
     Route: 058
  2. APIDRA [Suspect]
     Indication: TYPE 1 DIABETES MELLITUS
     Route: 058
     Dates: start: 2012
  3. LANTUS [Suspect]
     Indication: TYPE 1 DIABETES MELLITUS
     Route: 058
     Dates: start: 2012
  4. AUTOPEN 24 [Suspect]
     Indication: DEVICE THERAPY
  5. CALCIUM [Concomitant]
     Indication: SURGERY
     Route: 048
  6. CLOPIDOGREL [Concomitant]
     Indication: ARTERIAL OCCLUSIVE DISEASE
     Route: 048
     Dates: start: 201305
  7. SOMALGIN CARDIO [Concomitant]
     Indication: ANTICOAGULANT THERAPY
     Route: 048
     Dates: start: 2011
  8. ALL OTHER THERAPEUTIC PRODUCTS [Concomitant]
     Indication: ARTERIAL OCCLUSIVE DISEASE
     Dosage: STRENGTH: 10 MG
     Route: 048
     Dates: start: 201305
  9. INDAPEN [Concomitant]
     Indication: HYPERTENSION
     Route: 048
     Dates: start: 2008
  10. AAS PROTECT [Concomitant]
     Indication: ANTICOAGULANT THERAPY
     Route: 048
  11. GLIFAGE [Concomitant]
     Indication: TYPE 1 DIABETES MELLITUS
     Dosage: STRENGTH: 500 MG
     Route: 048
     Dates: start: 2009
  12. DIOVANE [Concomitant]
     Indication: HYPERTENSION
     Route: 048
  13. PURAN T4 [Concomitant]
     Indication: HYPOTHYROIDISM
     Route: 048
  14. CLIKSTAR [Concomitant]
     Indication: DEVICE THERAPY
  15. CLIKSTAR [Concomitant]
  16. CALCIUM/VITAMIN D [Concomitant]
     Indication: MINERAL SUPPLEMENTATION
     Route: 048

REACTIONS (8)
  - Catheter placement [Not Recovered/Not Resolved]
  - Arterial occlusive disease [Not Recovered/Not Resolved]
  - Fatigue [Not Recovered/Not Resolved]
  - Fall [Not Recovered/Not Resolved]
  - Fracture [Not Recovered/Not Resolved]
  - Pain in extremity [Not Recovered/Not Resolved]
  - Ligament sprain [Not Recovered/Not Resolved]
  - Incorrect dose administered [Unknown]
